FAERS Safety Report 7747337-6 (Version None)
Quarter: 2011Q3

REPORT INFORMATION
  Report Type: 
  Country: None (occurrence: None)
  Receive Date: 20110913
  Receipt Date: 20110907
  Transmission Date: 20111222
  Serious: Yes (Other)
  Sender: FDA-Public Use
  Company Number: US-PFIZER INC-2011108456

PATIENT
  Sex: Female

DRUGS (3)
  1. PREMPRO [Suspect]
     Indication: HORMONE REPLACEMENT THERAPY
     Dosage: 2.5 MG, UNK
     Route: 048
  2. PREMPRO [Suspect]
     Dosage: UNK
     Route: 048
     Dates: start: 19961001, end: 20020101
  3. PREMPRO [Suspect]
     Dosage: 0.625 - 2.5 MG
     Route: 048
     Dates: start: 19990101

REACTIONS (2)
  - LYMPHADENOPATHY [None]
  - BREAST CANCER FEMALE [None]
